FAERS Safety Report 4615976-7 (Version None)
Quarter: 2005Q1

REPORT INFORMATION
  Report Type: 
  Country: None (occurrence: None)
  Receive Date: 20050318
  Receipt Date: 20050308
  Transmission Date: 20050727
  Serious: Yes (Hospitalization)
  Sender: FDA-Public Use
  Company Number: 2005042629

PATIENT
  Age: 67 Year
  Sex: Male

DRUGS (3)
  1. IRINOTECAN HCL [Suspect]
     Indication: GASTRIC CANCER
     Dosage: 110 + 90 MG, INTRAVENOUS
     Route: 042
     Dates: start: 20040713, end: 20041107
  2. IRINOTECAN HCL [Suspect]
     Indication: GASTRIC CANCER
     Dosage: 110 + 90 MG, INTRAVENOUS
     Route: 042
     Dates: start: 20040615
  3. CISPLATIN [Suspect]
     Indication: GASTRIC CANCER
     Dosage: 130 MG, INTRAVENOUS
     Route: 042
     Dates: start: 20040615, end: 20041107

REACTIONS (4)
  - HYPONATRAEMIA [None]
  - LEUKOPENIA [None]
  - NEUTROPENIA [None]
  - THROMBOCYTOPENIA [None]
